FAERS Safety Report 9532897 (Version 2)
Quarter: 2014Q1

REPORT INFORMATION
  Report Type: Spontaneous
  Country: DK (occurrence: CA)
  Receive Date: 20130918
  Receipt Date: 20140122
  Transmission Date: 20141002
  Serious: Yes (Death, Other)
  Sender: FDA-Public Use
  Company Number: CA-FRI-1000048833

PATIENT
  Age: 40 Year
  Sex: Female

DRUGS (1)
  1. CELEXA [Suspect]

REACTIONS (2)
  - Completed suicide [Fatal]
  - Injury [Fatal]
